FAERS Safety Report 14407081 (Version 1)
Quarter: 2018Q1

REPORT INFORMATION
  Report Type: Report from Study
  Country: US (occurrence: US)
  Receive Date: 20180118
  Receipt Date: 20180118
  Transmission Date: 20180509
  Serious: Yes (Hospitalization, Other)
  Sender: FDA-Public Use
  Company Number: US-BRISTOL-MYERS SQUIBB COMPANY-BMS-2017-120761

PATIENT
  Age: 49 Year
  Sex: Female
  Weight: 71.66 kg

DRUGS (4)
  1. LISINOPRIL. [Concomitant]
     Active Substance: LISINOPRIL
     Indication: PRODUCT USED FOR UNKNOWN INDICATION
     Route: 065
  2. NIVOLUMAB [Suspect]
     Active Substance: NIVOLUMAB
     Indication: PRODUCT USED FOR UNKNOWN INDICATION
     Route: 065
  3. HUMIRA [Suspect]
     Active Substance: ADALIMUMAB
     Indication: PSORIASIS
     Dosage: 40 MG, Q2WK
     Route: 058
     Dates: start: 201507, end: 20151202
  4. HUMIRA [Suspect]
     Active Substance: ADALIMUMAB
     Indication: CROHN^S DISEASE
     Dosage: 40 MG, Q2WK
     Route: 058

REACTIONS (22)
  - Skin cancer [Unknown]
  - Cough [Unknown]
  - Generalised erythema [Unknown]
  - Gait disturbance [Recovering/Resolving]
  - Crohn^s disease [Recovered/Resolved]
  - Drug hypersensitivity [Unknown]
  - Colon cancer stage II [Recovered/Resolved]
  - Fatigue [Unknown]
  - Nasal congestion [Unknown]
  - Flushing [Unknown]
  - Psoriasis [Recovering/Resolving]
  - Anxiety [Unknown]
  - Erythema [Unknown]
  - Feeling cold [Unknown]
  - Pruritus [Unknown]
  - Pruritus allergic [Unknown]
  - Colon cancer stage IV [Recovered/Resolved]
  - Skin irritation [Unknown]
  - Nausea [Unknown]
  - Onychomadesis [Unknown]
  - Nasopharyngitis [Unknown]
  - Rash [Unknown]

NARRATIVE: CASE EVENT DATE: 201512
